FAERS Safety Report 20962224 (Version 1)
Quarter: 2022Q2

REPORT INFORMATION
  Report Type: Spontaneous
  Country: GB (occurrence: GB)
  Receive Date: 20220615
  Receipt Date: 20220615
  Transmission Date: 20220721
  Serious: Yes (Other)
  Sender: FDA-Public Use
  Company Number: None

PATIENT
  Age: 62 Year
  Sex: Male
  Weight: 84 kg

DRUGS (5)
  1. ARIPIPRAZOLE [Suspect]
     Active Substance: ARIPIPRAZOLE
     Indication: Ill-defined disorder
     Dosage: UNK
     Route: 065
     Dates: start: 20220608
  2. ARIPIPRAZOLE [Suspect]
     Active Substance: ARIPIPRAZOLE
     Dosage: 1 DF, QD
     Route: 065
     Dates: start: 20220324, end: 20220606
  3. DIAZEPAM [Concomitant]
     Active Substance: DIAZEPAM
     Indication: Ill-defined disorder
     Dosage: ONE TO BE TAKEN ONLY WHEN NEEDED, SHORT TERM USE
     Route: 065
     Dates: start: 20220608
  4. LITHIUM [Concomitant]
     Active Substance: LITHIUM
     Indication: Ill-defined disorder
     Dosage: 1 AT BEDTIME, BLOODS DUE EVERY 3 MONTHS
     Route: 065
     Dates: start: 20220205
  5. RIVAROXABAN [Concomitant]
     Active Substance: RIVAROXABAN
     Indication: Ill-defined disorder
     Dosage: 1 DF, QD
     Route: 065
     Dates: start: 20220205

REACTIONS (1)
  - Mania [Recovered/Resolved]

NARRATIVE: CASE EVENT DATE: 20220608
